FAERS Safety Report 7321291-3 (Version None)
Quarter: 2011Q1

REPORT INFORMATION
  Report Type: 
  Country: None (occurrence: None)
  Receive Date: 20110228
  Receipt Date: 20100224
  Transmission Date: 20110831
  Serious: No
  Sender: FDA-Public Use
  Company Number: US-PFIZER INC-2010025038

PATIENT
  Sex: Male
  Weight: 106.58 kg

DRUGS (4)
  1. FOCALIN [Concomitant]
     Indication: ATTENTION DEFICIT/HYPERACTIVITY DISORDER
     Dosage: 20 MG, 1X/DAY
     Route: 048
  2. ISOTRETINOIN [Concomitant]
     Indication: ACNE
     Dosage: 40 MG DAILY
     Route: 048
  3. GEODON [Suspect]
     Indication: BIPOLAR DISORDER
     Dosage: 40 MG, 1X/DAY
     Route: 048
  4. OXCARBAZEPINE [Concomitant]
     Indication: BIPOLAR DISORDER
     Dosage: 450 MG, 1X/DAY
     Route: 048

REACTIONS (2)
  - INSOMNIA [None]
  - DRUG INEFFECTIVE [None]
